FAERS Safety Report 7471626-6 (Version None)
Quarter: 2011Q2

REPORT INFORMATION
  Report Type: 
  Country: None (occurrence: None)
  Receive Date: 20110502
  Receipt Date: 20110419
  Transmission Date: 20111010
  Serious: Yes (Other)
  Sender: FDA-Public Use
  Company Number: 2011-0489

PATIENT

DRUGS (8)
  1. DOSTINEX [Concomitant]
  2. ANDROGEL [Concomitant]
  3. TAMOXIFEN CITRATE [Concomitant]
  4. SOMATULINE AUTOGEL(LANREOTIDE AUTOGEL) (LANREOTIDE) (LANREOTIDE  ACETA [Suspect]
     Indication: ACROMEGALY
     Dosage: 90MG (90MG, 1 IN 4 WK), INTRAMUSCULAR
     Dates: start: 20080201
  5. DDAVP [Concomitant]
  6. SOMAVERT [Concomitant]
  7. SYNTHROID [Concomitant]
  8. PARLODEL [Concomitant]

REACTIONS (1)
  - HAEMANGIOMA OF LIVER [None]
